FAERS Safety Report 7282400-8 (Version None)
Quarter: 2011Q1

REPORT INFORMATION
  Report Type: 
  Country: None (occurrence: None)
  Receive Date: 20110131
  Receipt Date: 20110118
  Transmission Date: 20110831
  Serious: Yes (Other)
  Sender: FDA-Public Use
  Company Number: MC201100019

PATIENT
  Age: 74 Year
  Sex: Male
  Weight: 88.5 kg

DRUGS (6)
  1. ANGIOMAX [Suspect]
     Indication: PERCUTANEOUS CORONARY INTERVENTION
     Dosage: INTRAVENOUS
     Route: 042
     Dates: start: 20101208
  2. ANGIOMAX [Suspect]
     Dosage: INFUSION
     Dates: start: 20101208
  3. SOLU-MEDROL [Concomitant]
  4. EPINEPHRINE (EPINEPHRINE BITARTRATE) [Concomitant]
  5. BENADRYL [Concomitant]
  6. LEVOPHED [Concomitant]

REACTIONS (1)
  - ANAPHYLACTIC SHOCK [None]
